FAERS Safety Report 25383750 (Version 1)
Quarter: 2025Q2

REPORT INFORMATION
  Report Type: Spontaneous
  Country: GR (occurrence: GR)
  Receive Date: 20250602
  Receipt Date: 20250602
  Transmission Date: 20250716
  Serious: Yes (Death, Hospitalization, Other)
  Sender: JOHNSON AND JOHNSON
  Company Number: GR-BAYER-2024A176142

PATIENT
  Age: 73 Year
  Sex: Male

DRUGS (1)
  1. XARELTO [Suspect]
     Active Substance: RIVAROXABAN
     Indication: Atrial fibrillation
     Dosage: 20 MG, QD

REACTIONS (10)
  - Multiple organ dysfunction syndrome [Fatal]
  - Aortic surgery [Unknown]
  - Paraplegia [Unknown]
  - Intentional product use issue [Unknown]
  - Back pain [Unknown]
  - Myalgia [Unknown]
  - Mobility decreased [Unknown]
  - Anaesthesia [Unknown]
  - Pallor [Unknown]
  - Peripheral coldness [Unknown]
